FAERS Safety Report 14715207 (Version 2)
Quarter: 2018Q2

REPORT INFORMATION
  Report Type: Spontaneous
  Country: US (occurrence: US)
  Receive Date: 20180404
  Receipt Date: 20180622
  Transmission Date: 20180711
  Serious: Yes (Death)
  Sender: FDA-Public Use
  Company Number: US-PFIZER INC-2018135484

PATIENT
  Age: 66 Year
  Sex: Female
  Weight: 106.59 kg

DRUGS (1)
  1. REVATIO [Suspect]
     Active Substance: SILDENAFIL CITRATE
     Indication: PULMONARY ARTERIAL HYPERTENSION
     Dosage: 3 DF, 3X/DAY(20MG TABLETS, 3 TABLETS 3 TIMES PER DAY)
     Dates: end: 2018

REACTIONS (3)
  - Overdose [Unknown]
  - Cardiac arrest [Fatal]
  - Pulmonary arterial hypertension [Fatal]
